FAERS Safety Report 16925558 (Version 2)
Quarter: 2020Q2

REPORT INFORMATION
  Report Type: Spontaneous
  Country: CA (occurrence: CA)
  Receive Date: 20191016
  Receipt Date: 20200522
  Transmission Date: 20200713
  Serious: Yes (Life-Threatening)
  Sender: FDA-Public Use
  Company Number: CA-ROCHE-2429837

PATIENT
  Age: 45 Year
  Sex: Female

DRUGS (35)
  1. PROGRAF [Suspect]
     Active Substance: TACROLIMUS
     Indication: TRANSPLANT
     Route: 048
  2. PROGRAF [Suspect]
     Active Substance: TACROLIMUS
     Route: 048
  3. PROGRAF [Suspect]
     Active Substance: TACROLIMUS
     Route: 048
  4. RAPAMUNE [Suspect]
     Active Substance: SIROLIMUS
     Indication: TRANSPLANT
     Route: 065
  5. SULFASALAZINE. [Suspect]
     Active Substance: SULFASALAZINE
     Indication: RHEUMATOID ARTHRITIS
     Route: 065
  6. DACLIZUMAB [Suspect]
     Active Substance: DACLIZUMAB
     Indication: TRANSPLANT
     Route: 042
  7. MYCOPHENOLATE MOFETIL. [Suspect]
     Active Substance: MYCOPHENOLATE MOFETIL
     Route: 048
  8. PROGRAF [Suspect]
     Active Substance: TACROLIMUS
     Route: 048
  9. ENBREL [Suspect]
     Active Substance: ETANERCEPT
     Route: 058
  10. TACROLIMUS. [Suspect]
     Active Substance: TACROLIMUS
     Indication: PRODUCT USED FOR UNKNOWN INDICATION
     Route: 048
  11. DACLIZUMAB [Suspect]
     Active Substance: DACLIZUMAB
     Route: 042
  12. MYCOPHENOLATE MOFETIL. [Suspect]
     Active Substance: MYCOPHENOLATE MOFETIL
     Indication: TRANSPLANT
     Route: 048
  13. MYCOPHENOLATE MOFETIL. [Suspect]
     Active Substance: MYCOPHENOLATE MOFETIL
     Route: 048
  14. ENBREL [Suspect]
     Active Substance: ETANERCEPT
     Indication: PRODUCT USED FOR UNKNOWN INDICATION
     Route: 058
  15. ENBREL [Suspect]
     Active Substance: ETANERCEPT
     Route: 058
  16. TACROLIMUS. [Suspect]
     Active Substance: TACROLIMUS
     Route: 048
  17. ENBREL [Suspect]
     Active Substance: ETANERCEPT
     Route: 058
  18. NEORAL [Suspect]
     Active Substance: CYCLOSPORINE
     Indication: TRANSPLANT
     Route: 065
  19. PROGRAF [Suspect]
     Active Substance: TACROLIMUS
     Route: 048
  20. TACROLIMUS. [Suspect]
     Active Substance: TACROLIMUS
     Route: 048
  21. CELLCEPT [Suspect]
     Active Substance: MYCOPHENOLATE MOFETIL\MYCOPHENOLATE MOFETIL HYDROCHLORIDE
     Route: 065
  22. MYCOPHENOLATE MOFETIL. [Suspect]
     Active Substance: MYCOPHENOLATE MOFETIL
     Route: 048
  23. TACROLIMUS. [Suspect]
     Active Substance: TACROLIMUS
     Route: 048
  24. TACROLIMUS. [Suspect]
     Active Substance: TACROLIMUS
     Route: 048
  25. TACROLIMUS. [Suspect]
     Active Substance: TACROLIMUS
     Route: 065
  26. CELLCEPT [Suspect]
     Active Substance: MYCOPHENOLATE MOFETIL\MYCOPHENOLATE MOFETIL HYDROCHLORIDE
     Indication: PRODUCT USED FOR UNKNOWN INDICATION
     Route: 065
  27. MYCOPHENOLATE MOFETIL. [Suspect]
     Active Substance: MYCOPHENOLATE MOFETIL
     Route: 048
  28. PROGRAF [Suspect]
     Active Substance: TACROLIMUS
     Route: 048
  29. PROGRAF [Suspect]
     Active Substance: TACROLIMUS
     Route: 048
  30. TACROLIMUS. [Suspect]
     Active Substance: TACROLIMUS
     Route: 048
  31. ENBREL [Suspect]
     Active Substance: ETANERCEPT
     Route: 058
  32. ENBREL [Suspect]
     Active Substance: ETANERCEPT
     Route: 058
  33. PROGRAF [Suspect]
     Active Substance: TACROLIMUS
     Route: 048
  34. PROGRAF [Suspect]
     Active Substance: TACROLIMUS
     Route: 048
  35. REMICADE [Suspect]
     Active Substance: INFLIXIMAB
     Indication: PRODUCT USED FOR UNKNOWN INDICATION
     Route: 042

REACTIONS (13)
  - Condition aggravated [Not Recovered/Not Resolved]
  - Liver function test abnormal [Not Recovered/Not Resolved]
  - Pneumonia [Not Recovered/Not Resolved]
  - Sleep disorder due to general medical condition, insomnia type [Not Recovered/Not Resolved]
  - Transplant dysfunction [Not Recovered/Not Resolved]
  - Transplant rejection [Not Recovered/Not Resolved]
  - Loss of personal independence in daily activities [Not Recovered/Not Resolved]
  - Rheumatoid arthritis [Not Recovered/Not Resolved]
  - Drug ineffective [Unknown]
  - Ovarian cyst [Not Recovered/Not Resolved]
  - Pain [Not Recovered/Not Resolved]
  - Acne [Not Recovered/Not Resolved]
  - Alopecia [Not Recovered/Not Resolved]
